FAERS Safety Report 8484550-7 (Version None)
Quarter: 2012Q3

REPORT INFORMATION
  Report Type: 
  Country: None (occurrence: None)
  Receive Date: 20120703
  Receipt Date: 20120627
  Transmission Date: 20120928
  Serious: Yes (Hospitalization, Other)
  Sender: FDA-Public Use
  Company Number: US-PFIZER INC-2012155221

PATIENT
  Sex: Male
  Weight: 112 kg

DRUGS (5)
  1. LYRICA [Suspect]
     Indication: GAIT DISTURBANCE
  2. LYRICA [Suspect]
     Indication: NEUROPATHY PERIPHERAL
     Dosage: 200 MG, 3X/DAY
  3. FINASTERIDE [Concomitant]
     Indication: PROSTATOMEGALY
     Dosage: 5 MG, DAILY
  4. WELLBUTRIN [Concomitant]
     Indication: DEPRESSION
     Dosage: 100 MG, 3X/DAY
  5. BUSPAR [Concomitant]
     Indication: AFFECTIVE DISORDER
     Dosage: 10 MG, 3X/DAY

REACTIONS (4)
  - NEOPLASM [None]
  - BACK PAIN [None]
  - LYMPHOMA [None]
  - INTERVERTEBRAL DISC DISORDER [None]
